FAERS Safety Report 10026858 (Version 2)
Quarter: 2014Q2

REPORT INFORMATION
  Report Type: Spontaneous
  Country: DK (occurrence: None)
  Receive Date: 20140318
  Receipt Date: 20140414
  Transmission Date: 20141212
  Serious: Yes (Disabling)
  Sender: FDA-Public Use
  Company Number: AUR-APL-2014-02940

PATIENT
  Age: 57 Year
  Sex: Female

DRUGS (2)
  1. SIMVASTATIN [Suspect]
     Indication: PRODUCT USED FOR UNKNOWN INDICATION
     Dates: start: 20100112, end: 20120118
  2. EZETROL [Concomitant]
     Indication: PRODUCT USED FOR UNKNOWN INDICATION

REACTIONS (9)
  - Arrhythmia [None]
  - Fatigue [None]
  - Muscle spasms [None]
  - Muscle injury [None]
  - Myopathy [None]
  - Myalgia [None]
  - Pain in extremity [None]
  - Pain in extremity [None]
  - Gait disturbance [None]
